FAERS Safety Report 4865573-3 (Version None)
Quarter: 2005Q4

REPORT INFORMATION
  Report Type: 
  Country: None (occurrence: None)
  Receive Date: 20051223
  Receipt Date: 20051213
  Transmission Date: 20060501
  Serious: Yes (Hospitalization, Other)
  Sender: FDA-Public Use
  Company Number: KE-GLAXOSMITHKLINE-B0404750A

PATIENT

DRUGS (3)
  1. NEVIRAPINE [Suspect]
     Indication: ANTIVIRAL PROPHYLAXIS
     Dosage: 2MGK SINGLE DOSE
     Route: 048
  2. COMBIVIR [Suspect]
     Indication: ANTIVIRAL PROPHYLAXIS
     Dosage: 1TAB TWICE PER DAY
  3. NEVIRAPINE [Suspect]
     Dosage: 200MG SEE DOSAGE TEXT

REACTIONS (1)
  - GASTROENTERITIS [None]
